FAERS Safety Report 4852873-6 (Version None)
Quarter: 2005Q4

REPORT INFORMATION
  Report Type: 
  Country: None (occurrence: None)
  Receive Date: 20051214
  Receipt Date: 20051208
  Transmission Date: 20060501
  Serious: Yes (Hospitalization, Other)
  Sender: FDA-Public Use
  Company Number: 2005PK02354

PATIENT
  Age: 27228 Day
  Sex: Female

DRUGS (1)
  1. ZD1839 [Suspect]
     Indication: NON-SMALL CELL LUNG CANCER
     Route: 048
     Dates: start: 20050610, end: 20050713

REACTIONS (2)
  - ABDOMINAL PAIN [None]
  - ANAEMIA [None]
